FAERS Safety Report 9054353 (Version 3)
Quarter: 2013Q3

REPORT INFORMATION
  Report Type: Spontaneous
  Country: DE (occurrence: DE)
  Receive Date: 20130208
  Receipt Date: 20130821
  Transmission Date: 20140515
  Serious: Yes (Hospitalization)
  Sender: FDA-Public Use
  Company Number: DE-AMGEN-DEUSP2013006699

PATIENT
  Age: 7 Year
  Sex: Male
  Weight: 21 kg

DRUGS (1)
  1. PROLIA [Suspect]
     Indication: BONE CYST
     Dosage: 60 MG, UNK
     Route: 058
     Dates: start: 201108, end: 201208

REACTIONS (9)
  - Hypercalcaemia [Recovering/Resolving]
  - Papilloedema [Unknown]
  - Intracranial pressure increased [Unknown]
  - Respiratory rate increased [Unknown]
  - Nephrocalcinosis [Unknown]
  - Musculoskeletal chest pain [Unknown]
  - Vomiting [Unknown]
  - Weight decreased [Unknown]
  - Inappropriate schedule of drug administration [Unknown]
